FAERS Safety Report 4587415-6 (Version None)
Quarter: 2005Q1

REPORT INFORMATION
  Report Type: 
  Country: None (occurrence: None)
  Receive Date: 20050218
  Receipt Date: 20050208
  Transmission Date: 20050727
  Serious: Yes (Other)
  Sender: FDA-Public Use
  Company Number: US-JNJFOC-20050204418

PATIENT
  Sex: Female

DRUGS (9)
  1. REMICADE [Suspect]
     Indication: RHEUMATOID ARTHRITIS
     Route: 042
  2. MEGA MULTIPLE/CHELATED MINERAL TAB [Concomitant]
     Route: 049
  3. VITAMIN E [Concomitant]
     Route: 049
  4. ALBERTONS HI-CAL [Concomitant]
     Route: 049
  5. NEXIUM [Concomitant]
     Route: 049
  6. DETROL LA [Concomitant]
     Route: 049
  7. FEMHRT [Concomitant]
     Route: 049
  8. FEMHRT [Concomitant]
     Dosage: 1/5 1-5 MG -MCG
     Route: 049
  9. DESYREL [Concomitant]
     Dosage: AT HS
     Route: 049

REACTIONS (1)
  - LUNG ADENOCARCINOMA STAGE IV [None]
